FAERS Safety Report 5742305-8 (Version None)
Quarter: 2008Q2

REPORT INFORMATION
  Report Type: 
  Country: None (occurrence: None)
  Receive Date: 20080519
  Receipt Date: 20080509
  Transmission Date: 20081010
  Serious: Yes (Life-Threatening, Hospitalization)
  Sender: FDA-Public Use
  Company Number: PHHY2008FI07636

PATIENT
  Age: 50 Year
  Sex: Female

DRUGS (5)
  1. FEMAR [Suspect]
     Indication: BREAST CANCER
     Dosage: 2.5 MG, QD
  2. ESTROGEN NOS [Concomitant]
     Indication: MENOPAUSAL SYMPTOMS
     Dosage: PRN
  3. PAROXETINE HCL [Concomitant]
     Indication: MENOPAUSAL SYMPTOMS
     Dosage: 20 MG, QD
  4. MAREVAN [Concomitant]
     Indication: THROMBOSIS PROPHYLAXIS
     Dosage: 7.5 MG, QD
  5. ANESTHETICS NOS [Concomitant]
     Indication: HYSTERECTOMY

REACTIONS (7)
  - CYSTOCELE [None]
  - ENDOMETRIAL DISORDER [None]
  - ENDOMETRIAL HYPERPLASIA [None]
  - HYSTERECTOMY [None]
  - MICTURITION URGENCY [None]
  - RECTOCELE [None]
  - UTERINE CERVICAL SQUAMOUS METAPLASIA [None]
